FAERS Safety Report 4569214-4 (Version None)
Quarter: 2005Q1

REPORT INFORMATION
  Report Type: 
  Country: None (occurrence: None)
  Receive Date: 20050201
  Receipt Date: 20050119
  Transmission Date: 20050727
  Serious: Yes (Hospitalization)
  Sender: FDA-Public Use
  Company Number: 2004UW25840

PATIENT
  Age: 74 Year
  Sex: Female
  Weight: 54.4316 kg

DRUGS (3)
  1. CRESTOR [Suspect]
     Dosage: 20 MG PO
     Route: 048
     Dates: end: 20041115
  2. MAXZIDE [Concomitant]
  3. MINIPRESS [Concomitant]

REACTIONS (3)
  - CHOLESTASIS [None]
  - DILATATION INTRAHEPATIC DUCT ACQUIRED [None]
  - RENAL FAILURE [None]
